FAERS Safety Report 8536054-0 (Version None)
Quarter: 2012Q3

REPORT INFORMATION
  Report Type: 
  Country: None (occurrence: None)
  Receive Date: 20120718
  Receipt Date: 20120718
  Transmission Date: 20120928
  Serious: Yes (Hospitalization)
  Sender: FDA-Public Use
  Company Number: None

PATIENT
  Sex: Male
  Weight: 70 kg

DRUGS (6)
  1. METHOTREXATE [Suspect]
     Dosage: 15 MG
  2. VINCRISTINE SULFATE [Suspect]
     Dosage: 1.5 MG
  3. CYTARABINE [Suspect]
     Dosage: 75 MG
  4. PEG-L-ASPARAGINASE (K-H) [Suspect]
     Dosage: 2500 IU
  5. CYCLOPHOSPHAMIDE [Suspect]
     Dosage: 1000 MG
  6. MERCAPTOPURINE [Suspect]
     Dosage: 60 MG

REACTIONS (1)
  - BLOOD TRIGLYCERIDES INCREASED [None]
